FAERS Safety Report 8245563-3 (Version None)
Quarter: 2012Q1

REPORT INFORMATION
  Report Type: 
  Country: None (occurrence: None)
  Receive Date: 20120329
  Receipt Date: 20120216
  Transmission Date: 20120608
  Serious: Yes (Disabling, Other)
  Sender: FDA-Public Use
  Company Number: PHHY2012ES025864

PATIENT
  Sex: Female

DRUGS (5)
  1. TAMOXIFEN CITRATE [Concomitant]
  2. GOSERELIN [Concomitant]
  3. DOCETAXEL [Concomitant]
  4. ZOMETA [Suspect]
     Indication: BREAST CANCER METASTATIC
     Dosage: 15 MG/KG EVERY 21 DAYS
     Route: 042
     Dates: start: 20090211, end: 20091217
  5. AVASTIN [Suspect]
     Indication: BREAST CANCER METASTATIC
     Dosage: 4 MG EVERY 21 DAYS
     Route: 042
     Dates: start: 20091211, end: 20091217

REACTIONS (1)
  - OSTEONECROSIS OF JAW [None]
